FAERS Safety Report 4931419-8 (Version None)
Quarter: 2006Q1

REPORT INFORMATION
  Report Type: 
  Country: None (occurrence: None)
  Receive Date: 20060228
  Receipt Date: 20060215
  Transmission Date: 20060701
  Serious: Yes (Other)
  Sender: FDA-Public Use
  Company Number: 2006024649

PATIENT
  Age: 54 Year
  Sex: Female
  Weight: 63.5036 kg

DRUGS (3)
  1. AROMASIN [Suspect]
     Indication: BREAST CANCER
     Dosage: 25 MG (25 MG)
     Dates: start: 20051228
  2. PROZAC [Suspect]
     Indication: DEPRESSION
     Dates: start: 20050801, end: 20060201
  3. SYNTHROID [Suspect]
     Indication: THYROID DISORDER
     Dates: start: 19900101

REACTIONS (6)
  - DRUG INTERACTION [None]
  - FATIGUE [None]
  - HOT FLUSH [None]
  - HYPERTENSION [None]
  - NAUSEA [None]
  - TACHYCARDIA [None]
